FAERS Safety Report 7554815-1 (Version None)
Quarter: 2011Q2

REPORT INFORMATION
  Report Type: 
  Country: None (occurrence: None)
  Receive Date: 20110614
  Receipt Date: 20110614
  Transmission Date: 20111010
  Serious: Yes (Other)
  Sender: FDA-Public Use
  Company Number: None

PATIENT
  Age: 62 Year
  Sex: Male
  Weight: 103.6 kg

DRUGS (4)
  1. LOSARTAN POTASSIUM AND HYDROCHLOROTHIAZIDE [Concomitant]
  2. FLUOXETINE HCL [Concomitant]
  3. PANTOPRAZOLE [Concomitant]
  4. ZOLPIDEM [Suspect]
     Indication: INSOMNIA
     Dosage: 1 TALBET QHS 047
     Dates: start: 20110510, end: 20110613

REACTIONS (2)
  - MIDDLE INSOMNIA [None]
  - PRODUCT QUALITY ISSUE [None]
